FAERS Safety Report 5260141-6 (Version None)
Quarter: 2007Q1

REPORT INFORMATION
  Report Type: 
  Country: None (occurrence: None)
  Receive Date: 20070309
  Receipt Date: 20060403
  Transmission Date: 20070707
  Serious: No
  Sender: FDA-Public Use
  Company Number: US-GLAXOSMITHKLINE-A0599838A

PATIENT
  Age: 48 Year
  Sex: Male

DRUGS (1)
  1. NICORETTE (MINT) [Suspect]
     Indication: DRUG WITHDRAWAL MAINTENANCE THERAPY

REACTIONS (5)
  - ERYTHEMA [None]
  - FEELING HOT [None]
  - INTENTIONAL DRUG MISUSE [None]
  - SKIN INFLAMMATION [None]
  - URTICARIA [None]
